FAERS Safety Report 6404824-0 (Version None)
Quarter: 2009Q4

REPORT INFORMATION
  Report Type: 
  Country: None (occurrence: None)
  Receive Date: 20091016
  Receipt Date: 20091009
  Transmission Date: 20100525
  Serious: Yes (Other)
  Sender: FDA-Public Use
  Company Number: BR-ABBOTT-09P-020-0601816-00

PATIENT
  Sex: Male
  Weight: 92 kg

DRUGS (6)
  1. HUMIRA [Suspect]
     Indication: ANKYLOSING SPONDYLITIS
     Route: 058
     Dates: end: 20090921
  2. PARACETAMOL [Concomitant]
     Indication: PAIN
     Route: 048
     Dates: start: 20080101
  3. CODEX [Concomitant]
     Indication: PAIN
     Route: 048
     Dates: start: 20080101
  4. NORTRIPTYLINE [Concomitant]
     Indication: PAIN
     Route: 048
     Dates: start: 20080101
  5. UNKNOWN MEDICATION [Concomitant]
     Indication: BLOOD CHOLESTEROL ABNORMAL
  6. UNKNOWN MEDICATION [Concomitant]
     Indication: HYPERTENSION

REACTIONS (1)
  - NEOPLASM PROGRESSION [None]
